FAERS Safety Report 7424385-7 (Version None)
Quarter: 2011Q2

REPORT INFORMATION
  Report Type: 
  Country: None (occurrence: None)
  Receive Date: 20110419
  Receipt Date: 20110415
  Transmission Date: 20111010
  Serious: Yes (Other)
  Sender: FDA-Public Use
  Company Number: BR-PFIZER INC-2011081496

PATIENT
  Age: 55 Year
  Sex: Female
  Weight: 62 kg

DRUGS (10)
  1. RIVOTRIL [Concomitant]
     Indication: INSOMNIA
     Dosage: 2 MG, ONE HALF TABLET
  2. HIXIZINE [Concomitant]
     Indication: HYPERSENSITIVITY
     Dosage: 25 MG, UNK
  3. PONDERA [Concomitant]
     Indication: DEPRESSION
     Dosage: 25 MG, UNK
  4. ENALAPRIL [Concomitant]
     Indication: HYPERTENSION
     Dosage: 20 MG,ONE TABLET
  5. CHAMPIX [Suspect]
     Indication: TOBACCO ABUSE
     Dosage: UNK
     Route: 048
     Dates: start: 20110301, end: 20110101
  6. ASPIRIN [Concomitant]
     Indication: ANTICOAGULANT THERAPY
     Dosage: ASPIRINA PREVENT 100
  7. METFORMIN [Concomitant]
     Indication: DIABETES MELLITUS
     Dosage: UNK
  8. GINKGO BILOBA [Concomitant]
     Indication: MEMORY IMPAIRMENT
     Dosage: UNK
  9. HYDROCHLOROTHIAZIDE [Concomitant]
     Indication: HYPERTENSION
     Dosage: 25 MG, UNK
  10. CHAMPIX [Suspect]
     Dosage: 1 MG, 2X/DAY (1 MG EVERY 12 HOURS)
     Route: 048
     Dates: start: 20110101

REACTIONS (7)
  - TOBACCO USER [None]
  - COUGH [None]
  - BLOOD PRESSURE INCREASED [None]
  - NAUSEA [None]
  - INCREASED APPETITE [None]
  - HEADACHE [None]
  - NASOPHARYNGITIS [None]
